FAERS Safety Report 26157449 (Version 1)
Quarter: 2025Q4

REPORT INFORMATION
  Report Type: Spontaneous
  Country: US (occurrence: US)
  Receive Date: 20251215
  Receipt Date: 20251215
  Transmission Date: 20260119
  Serious: No
  Sender: LEO PHARM
  Company Number: US-LEO Pharma-384785

PATIENT
  Age: 70 Year
  Sex: Female

DRUGS (1)
  1. ANZUPGO [Suspect]
     Active Substance: DELGOCITINIB
     Indication: Product used for unknown indication
     Dosage: TREATMENT DISCONTINUED ON AN UNKNOWN DATE
     Route: 003

REACTIONS (1)
  - Drug ineffective [Unknown]
